FAERS Safety Report 4575350-9 (Version None)
Quarter: 2005Q1

REPORT INFORMATION
  Report Type: 
  Country: None (occurrence: None)
  Receive Date: 20050209
  Receipt Date: 20050202
  Transmission Date: 20050727
  Serious: Yes (Other)
  Sender: FDA-Public Use
  Company Number: PHEH2005US01577

PATIENT
  Age: 66 Year
  Sex: Male

DRUGS (2)
  1. TRILEPTAL [Suspect]
     Indication: BIPOLAR DISORDER
     Dosage: 300 MG, TID
     Route: 048
  2. SYNTHROID [Concomitant]
     Indication: HYPOTHYROIDISM

REACTIONS (3)
  - BLOOD THYROID STIMULATING HORMONE DECREASED [None]
  - THYROID FUNCTION TEST ABNORMAL [None]
  - THYROXINE FREE DECREASED [None]
